FAERS Safety Report 4674502-7 (Version None)
Quarter: 2005Q2

REPORT INFORMATION
  Report Type: 
  Country: None (occurrence: None)
  Receive Date: 20050524
  Receipt Date: 20050505
  Transmission Date: 20051028
  Serious: Yes (Hospitalization)
  Sender: FDA-Public Use
  Company Number: US_0505117036

PATIENT
  Age: 64 Year
  Sex: Female

DRUGS (1)
  1. EVISTA [Suspect]
     Indication: OSTEOPOROSIS PROPHYLAXIS
     Dates: start: 20011001

REACTIONS (6)
  - ESTROGENIC EFFECT [None]
  - OVARIAN ATROPHY [None]
  - POSTMENOPAUSAL HAEMORRHAGE [None]
  - SARCOMA UTERUS [None]
  - TUMOUR INVASION [None]
  - UTERINE POLYP [None]
